FAERS Safety Report 5423662-9 (Version None)
Quarter: 2007Q3

REPORT INFORMATION
  Report Type: 
  Country: None (occurrence: None)
  Receive Date: 20070823
  Receipt Date: 20070820
  Transmission Date: 20080115
  Serious: Yes (Hospitalization)
  Sender: FDA-Public Use
  Company Number: A0673150A

PATIENT
  Age: 1 Year
  Sex: Male

DRUGS (1)
  1. FLONASE [Suspect]
     Dosage: 1SPR PER DAY
     Route: 045
     Dates: start: 20070809, end: 20070809

REACTIONS (6)
  - DRUG PRESCRIBING ERROR [None]
  - DYSPNOEA [None]
  - HEART RATE INCREASED [None]
  - MALAISE [None]
  - VOMITING [None]
  - WHEEZING [None]
